FAERS Safety Report 5891773-X (Version None)
Quarter: 2008Q3

REPORT INFORMATION
  Report Type: 
  Country: None (occurrence: None)
  Receive Date: 20080922
  Receipt Date: 20080916
  Transmission Date: 20090109
  Serious: Yes (Other)
  Sender: FDA-Public Use
  Company Number: NL-ASTRAZENECA-2008AC02498

PATIENT
  Sex: Female

DRUGS (1)
  1. PROPOFOL [Suspect]
     Dosage: ACCIDENTAL EXTRAVASATION

REACTIONS (2)
  - ACCIDENTAL EXPOSURE [None]
  - ADMINISTRATION SITE PAIN [None]
